FAERS Safety Report 6875602-3 (Version None)
Quarter: 2010Q3

REPORT INFORMATION
  Report Type: 
  Country: None (occurrence: None)
  Receive Date: 20100727
  Receipt Date: 20100716
  Transmission Date: 20110219
  Serious: Yes (Hospitalization)
  Sender: FDA-Public Use
  Company Number: JP-JNJFOC-20100608450

PATIENT
  Sex: Female
  Weight: 65 kg

DRUGS (18)
  1. DOXIL [Suspect]
     Indication: OVARIAN CANCER RECURRENT
     Route: 042
  2. DOXIL [Suspect]
     Route: 042
  3. DECADRON [Concomitant]
     Indication: PROPHYLAXIS
     Route: 042
  4. DECADRON [Concomitant]
     Route: 042
  5. SEROTONE [Concomitant]
     Indication: PROPHYLAXIS
     Route: 042
  6. SEROTONE [Concomitant]
     Route: 042
  7. MUCOSTA [Concomitant]
     Indication: PROPHYLAXIS
     Route: 048
  8. DECADRON [Concomitant]
     Route: 048
  9. DECADRON [Concomitant]
     Route: 048
  10. DECADRON [Concomitant]
     Route: 048
  11. DECADRON [Concomitant]
     Route: 048
  12. LOXONIN [Concomitant]
     Indication: INTERSTITIAL LUNG DISEASE
     Dosage: AS NEEDED.
     Route: 048
  13. AZUNOL [Concomitant]
     Indication: STOMATITIS
     Route: 048
  14. PYDOXAL [Concomitant]
     Indication: STOMATITIS
     Route: 048
  15. KERATINAMIN [Concomitant]
     Indication: PIGMENTATION DISORDER
     Route: 061
  16. CINAL [Concomitant]
     Indication: PIGMENTATION DISORDER
     Route: 048
  17. LOPEMIN [Concomitant]
     Indication: PROPHYLAXIS
     Route: 048
  18. FOIPAN [Concomitant]
     Indication: STOMATITIS
     Route: 002

REACTIONS (1)
  - INTERSTITIAL LUNG DISEASE [None]
